FAERS Safety Report 10587557 (Version 1)
Quarter: 2014Q4

REPORT INFORMATION
  Report Type: Spontaneous
  Country: CN (occurrence: CN)
  Receive Date: 20141117
  Receipt Date: 20141117
  Transmission Date: 20150529
  Serious: Yes (Other)
  Sender: FDA-Public Use
  Company Number: CN-ASTRAZENECA-2014SE86814

PATIENT
  Age: 21862 Day
  Sex: Male
  Weight: 50 kg

DRUGS (3)
  1. CHYMOTRYPSIN [Suspect]
     Active Substance: CHYMOTRYPSIN
     Indication: SPUTUM ABNORMAL
     Route: 065
     Dates: start: 20140413, end: 20140413
  2. SODIUM CHLORIDE. [Concomitant]
     Active Substance: SODIUM CHLORIDE
     Indication: DRUG DEPENDENCE
     Dates: start: 20140413, end: 20140413
  3. BUDESONIDE. [Suspect]
     Active Substance: BUDESONIDE
     Indication: INFECTION
     Route: 055
     Dates: start: 20140413, end: 20140413

REACTIONS (4)
  - Dyspnoea [Recovering/Resolving]
  - Tachypnoea [Recovering/Resolving]
  - Drug hypersensitivity [Recovering/Resolving]
  - Cold sweat [Recovering/Resolving]

NARRATIVE: CASE EVENT DATE: 20140413
